FAERS Safety Report 7123660-3 (Version None)
Quarter: 2010Q4

REPORT INFORMATION
  Report Type: 
  Country: None (occurrence: None)
  Receive Date: 20101125
  Receipt Date: 20101124
  Transmission Date: 20110411
  Serious: Yes (Hospitalization)
  Sender: FDA-Public Use
  Company Number: US-PFIZER INC-2010157244

PATIENT
  Age: 73 Year
  Sex: Female
  Weight: 65.5 kg

DRUGS (11)
  1. BLINDED *NO SUBJECT DRUG [Suspect]
     Indication: NON-SMALL CELL LUNG CANCER
     Dosage: 37.5 MG, CYCLIC, EVERY 21 DAYS
     Route: 048
     Dates: start: 20100827
  2. BLINDED *PLACEBO [Suspect]
     Indication: NON-SMALL CELL LUNG CANCER
     Dosage: 37.5 MG, CYCLIC, EVERY 21 DAYS
     Route: 048
     Dates: start: 20100827
  3. SUNITINIB MALATE [Suspect]
     Indication: NON-SMALL CELL LUNG CANCER
     Dosage: 37.5 MG, CYCLIC, EVERY 21 DAYS
     Route: 048
     Dates: start: 20100827
  4. SYNTHROID [Suspect]
  5. LISINOPRIL [Concomitant]
  6. TRAVOPROST [Concomitant]
  7. ACETYLSALICYLIC ACID [Concomitant]
  8. MOBIC [Concomitant]
  9. ASCORBIC ACID [Concomitant]
  10. VITAMIN D [Concomitant]
     Indication: SUPPLEMENTATION THERAPY
  11. VITAMIN E [Concomitant]

REACTIONS (3)
  - HYPOMAGNESAEMIA [None]
  - KIDNEY INFECTION [None]
  - VOMITING [None]
